FAERS Safety Report 11789106 (Version 1)
Quarter: 2015Q4

REPORT INFORMATION
  Report Type: Spontaneous
  Country: GB (occurrence: GB)
  Receive Date: 20151201
  Receipt Date: 20151201
  Transmission Date: 20160305
  Serious: Yes (Other)
  Sender: FDA-Public Use
  Company Number: GB-AUROBINDO-AUR-APL-2015-10435

PATIENT
  Age: 50 Year
  Sex: Female
  Weight: 63.5 kg

DRUGS (2)
  1. TAMSULOSIN [Suspect]
     Active Substance: TAMSULOSIN
     Indication: RENAL COLIC
     Dosage: 1 DF, ONCE A DAY
     Route: 048
     Dates: start: 20150809
  2. IRBESARTAN. [Concomitant]
     Active Substance: IRBESARTAN
     Indication: PRODUCT USED FOR UNKNOWN INDICATION
     Route: 065

REACTIONS (3)
  - Off label use [Unknown]
  - Vision blurred [Recovered/Resolved]
  - Renal colic [Unknown]

NARRATIVE: CASE EVENT DATE: 20150809
